FAERS Safety Report 5796287-3 (Version None)
Quarter: 2008Q3

REPORT INFORMATION
  Report Type: 
  Country: None (occurrence: None)
  Receive Date: 20080701
  Receipt Date: 20080624
  Transmission Date: 20090109
  Serious: Yes (Other)
  Sender: FDA-Public Use
  Company Number: BE-JNJFOC-20080601579

PATIENT
  Sex: Male
  Weight: 73 kg

DRUGS (7)
  1. REMICADE [Suspect]
     Route: 042
  2. REMICADE [Suspect]
     Route: 042
  3. REMICADE [Suspect]
     Route: 042
  4. REMICADE [Suspect]
     Indication: CROHN'S DISEASE
     Route: 042
  5. FOLIC ACID [Concomitant]
     Indication: VITAMIN SUPPLEMENTATION
  6. COLITOFALK [Concomitant]
  7. EMTHEXATE [Concomitant]
     Indication: CROHN'S DISEASE
     Route: 058

REACTIONS (11)
  - ARTHRALGIA [None]
  - BILIARY CYST [None]
  - BONE SCAN ABNORMAL [None]
  - HEPATIC CYST [None]
  - ILEITIS [None]
  - INFECTION [None]
  - MYALGIA [None]
  - PROSTATIC CALCIFICATION [None]
  - PYREXIA [None]
  - RECTAL CANCER [None]
  - WEIGHT DECREASED [None]
